FAERS Safety Report 9092496 (Version 1)
Quarter: 2013Q1

REPORT INFORMATION
  Report Type: Report from Study
  Country: US (occurrence: US)
  Receive Date: 20130131
  Receipt Date: 20130131
  Transmission Date: 20140127
  Serious: No
  Sender: FDA-Public Use
  Company Number: US-ABBOTT-12P-163-0992927-00

PATIENT
  Age: 43 Year
  Sex: Female

DRUGS (7)
  1. HUMIRA [Suspect]
     Indication: ANKYLOSING SPONDYLITIS
     Dates: start: 201201
  2. OMEPRAZOLE [Concomitant]
     Indication: GASTROINTESTINAL DISORDER
     Dosage: 40MG DAILY
  3. VITAMIN D [Concomitant]
     Indication: VITAMIN D DECREASED
  4. FOLATE [Concomitant]
     Indication: BLOOD DISORDER
     Dosage: 80MG DAILY
  5. PROCARDIA [Concomitant]
     Indication: RAYNAUD^S PHENOMENON
     Dosage: 30MG DAILY
  6. OXYCODONE [Concomitant]
     Indication: BREAKTHROUGH PAIN
     Dosage: 5
  7. DURAGESIC [Concomitant]
     Dosage: CHANGE PATCH EVERY 3 DAYS
     Dates: start: 201201

REACTIONS (10)
  - Paraesthesia [Not Recovered/Not Resolved]
  - Hypoaesthesia [Not Recovered/Not Resolved]
  - Pollakiuria [Unknown]
  - Back pain [Unknown]
  - Blood urine present [Unknown]
  - Micturition urgency [Not Recovered/Not Resolved]
  - Dysuria [Not Recovered/Not Resolved]
  - Burning sensation [Not Recovered/Not Resolved]
  - Pain in extremity [Not Recovered/Not Resolved]
  - Inappropriate schedule of drug administration [Unknown]
